FAERS Safety Report 7057806-2 (Version None)
Quarter: 2010Q4

REPORT INFORMATION
  Report Type: 
  Country: None (occurrence: None)
  Receive Date: 20101022
  Receipt Date: 20101011
  Transmission Date: 20110411
  Serious: Yes (Other)
  Sender: FDA-Public Use
  Company Number: US-PFIZER INC-2010102180

PATIENT
  Sex: Female
  Weight: 61.2 kg

DRUGS (5)
  1. LYRICA [Suspect]
     Indication: NEUROPATHY PERIPHERAL
     Dosage: 75 MG, 1X/DAY
     Route: 048
     Dates: start: 20100805, end: 20100812
  2. LYRICA [Suspect]
     Indication: BACK PAIN
     Dosage: 75 MG, 2X/DAY
     Dates: start: 20100812, end: 20100812
  3. LYRICA [Suspect]
     Indication: PAIN
  4. HYDROCODONE [Concomitant]
     Indication: NERVE INJURY
     Dosage: 10 MG, 2X/DAY
     Route: 048
  5. CARVEDILOL [Concomitant]
     Indication: HYPERTENSION
     Dosage: 12.5 MG, 1X/DAY
     Route: 048

REACTIONS (11)
  - BALANCE DISORDER [None]
  - CONVULSION [None]
  - DRY MOUTH [None]
  - DYSPHAGIA [None]
  - GAIT DISTURBANCE [None]
  - HYPOAESTHESIA [None]
  - MUSCLE SPASMS [None]
  - MUSCULOSKELETAL STIFFNESS [None]
  - MYALGIA [None]
  - TORTICOLLIS [None]
  - TREMOR [None]
